FAERS Safety Report 9307797 (Version 2)
Quarter: 2013Q2

REPORT INFORMATION
  Report Type: Spontaneous
  Country: SE (occurrence: SE)
  Receive Date: 20130524
  Receipt Date: 20130626
  Transmission Date: 20140414
  Serious: Yes (Other)
  Sender: FDA-Public Use
  Company Number: SE-PFIZER INC-2013156196

PATIENT
  Age: 69 Year
  Sex: Female

DRUGS (2)
  1. FOLACIN [Suspect]
     Dosage: 5 MG, 1X/DAY
     Dates: start: 201209
  2. BEHEPAN [Suspect]
     Dosage: 1 MG, 1X/DAY
     Dates: start: 201209

REACTIONS (4)
  - Neoplasm [Not Recovered/Not Resolved]
  - Rash [Unknown]
  - Chromaturia [Unknown]
  - Dizziness [Unknown]
